FAERS Safety Report 15251369 (Version 2)
Quarter: 2018Q3

REPORT INFORMATION
  Report Type: Spontaneous
  Country: US (occurrence: US)
  Receive Date: 20180807
  Receipt Date: 20180808
  Transmission Date: 20181010
  Serious: No
  Sender: FDA-Public Use
  Company Number: US-SA-2018SA208666

PATIENT
  Age: 66 Year
  Sex: Female

DRUGS (2)
  1. LANTUS SOLOSTAR [Suspect]
     Active Substance: INSULIN GLARGINE
     Dosage: 14 UNITS, DAILY
  2. NOVOLIN [Concomitant]
     Active Substance: INSULIN HUMAN

REACTIONS (7)
  - Vision blurred [Unknown]
  - Dizziness [Unknown]
  - Urinary tract infection [Unknown]
  - Dysgeusia [Unknown]
  - Sinusitis [Unknown]
  - Hypoaesthesia oral [Unknown]
  - Blood glucose abnormal [Unknown]
